APPROVED DRUG PRODUCT: COLISTIMETHATE SODIUM
Active Ingredient: COLISTIMETHATE SODIUM
Strength: EQ 150MG BASE/VIAL
Dosage Form/Route: INJECTABLE;INJECTION
Application: A065177 | Product #001
Applicant: NEXUS PHARMACEUTICALS LLC
Approved: Mar 19, 2004 | RLD: No | RS: No | Type: DISCN